APPROVED DRUG PRODUCT: FLUCONAZOLE IN DEXTROSE 5% IN PLASTIC CONTAINER
Active Ingredient: FLUCONAZOLE
Strength: 200MG/100ML (2MG/ML)
Dosage Form/Route: INJECTABLE;INJECTION
Application: A077988 | Product #001
Applicant: WOODWARD PHARMA SERVICES LLC
Approved: May 26, 2010 | RLD: No | RS: No | Type: DISCN